FAERS Safety Report 22332209 (Version 1)
Quarter: 2023Q2

REPORT INFORMATION
  Report Type: Spontaneous
  Country: US (occurrence: None)
  Receive Date: 20230516
  Receipt Date: 20230516
  Transmission Date: 20230722
  Serious: No
  Sender: FDA-Public Use
  Company Number: None

PATIENT
  Age: 60 Year
  Sex: Female
  Weight: 76.5 kg

DRUGS (18)
  1. EVKEEZA [Suspect]
     Active Substance: EVINACUMAB-DGNB
     Indication: Type IIa hyperlipidaemia
     Dosage: OTHER QUANTITY : 8 ML;?OTHER FREQUENCY : MONTHLY;?OTHER ROUTE : INFUSION;?
     Route: 050
     Dates: start: 20221005
  2. ALLEGRA [Concomitant]
     Active Substance: FEXOFENADINE HYDROCHLORIDE
  3. MINERALS [Concomitant]
     Active Substance: MINERALS
  4. VITAMINS [Concomitant]
     Active Substance: VITAMINS
  5. FISH OIL [Concomitant]
     Active Substance: FISH OIL
  6. N-ACETYL [Concomitant]
  7. CYSTEINE [Concomitant]
     Active Substance: CYSTEINE
  8. DIETARY SUPPLEMENT\HERBALS\MILK THISTLE [Concomitant]
     Active Substance: MILK THISTLE
  9. DIETARY SUPPLEMENT\HERBALS\MILK THISTLE [Concomitant]
     Active Substance: MILK THISTLE
  10. LUTEIN [Concomitant]
     Active Substance: LUTEIN
  11. ZEAXANTHINE [Concomitant]
  12. MAGNESIUM [Concomitant]
     Active Substance: MAGNESIUM
  13. BERBERINE [Concomitant]
     Active Substance: BERBERINE
  14. MASTIC GUM [Concomitant]
  15. DEGLYCYRRHIZINATED LICORICE [Concomitant]
  16. PROBIOTICS NOS [Concomitant]
     Active Substance: PROBIOTICS NOS
  17. SACCHAROMYCES CEREVISIAE [Concomitant]
     Active Substance: SACCHAROMYCES CEREVISIAE
  18. UNSPECIFIED INGREDIENT [Concomitant]
     Active Substance: UNSPECIFIED INGREDIENT

REACTIONS (6)
  - Infusion related reaction [None]
  - Brain fog [None]
  - Loss of personal independence in daily activities [None]
  - Fatigue [None]
  - Nasopharyngitis [None]
  - Granuloma annulare [None]

NARRATIVE: CASE EVENT DATE: 20230506
